FAERS Safety Report 20807735 (Version 1)
Quarter: 2022Q2

REPORT INFORMATION
  Report Type: Spontaneous
  Country: US (occurrence: US)
  Receive Date: 20220510
  Receipt Date: 20220510
  Transmission Date: 20220721
  Serious: Yes (Other)
  Sender: FDA-Public Use
  Company Number: US-JNJFOC-20220507415

PATIENT

DRUGS (5)
  1. DARZALEX [Suspect]
     Active Substance: DARATUMUMAB
     Indication: Plasma cell myeloma
     Dosage: LAST ADMINISTERED DOSE WAS ON 8/FEB/2022
     Route: 065
     Dates: start: 20180409, end: 20180717
  2. POMALIDOMIDE [Suspect]
     Active Substance: POMALIDOMIDE
     Indication: Plasma cell myeloma
     Dosage: LAST DOSE ADMINISTERED WAS ON 8-FEB-2022
     Route: 065
     Dates: start: 20180409, end: 20180717
  3. DEXAMETHASONE [Suspect]
     Active Substance: DEXAMETHASONE
     Indication: Plasma cell myeloma
     Dosage: LAST DOSE WAS ON 8/FEB/2022
     Route: 065
     Dates: end: 20180717
  4. ZOMETA [Concomitant]
     Active Substance: ZOLEDRONIC ACID
     Indication: Product used for unknown indication
     Route: 065
  5. VENETOCLAX [Concomitant]
     Active Substance: VENETOCLAX
     Indication: Product used for unknown indication
     Dosage: CAN STOP ANYTIME
     Route: 065
     Dates: start: 20220422

REACTIONS (4)
  - Plasma cell myeloma [Unknown]
  - Cytopenia [Unknown]
  - Renal impairment [Unknown]
  - Hypercalcaemia [Unknown]
